FAERS Safety Report 18237981 (Version 4)
Quarter: 2020Q4

REPORT INFORMATION
  Report Type: Report from Study
  Country: US (occurrence: US)
  Receive Date: 20200907
  Receipt Date: 20201022
  Transmission Date: 20210113
  Serious: No
  Sender: FDA-Public Use
  Company Number: NVSC2020US239984

PATIENT
  Sex: Female
  Weight: 97.05 kg

DRUGS (1)
  1. COSENTYX [Suspect]
     Active Substance: SECUKINUMAB
     Indication: PSORIATIC ARTHROPATHY
     Dosage: 150 MG, QMO
     Route: 058
     Dates: start: 20200812, end: 20201020

REACTIONS (10)
  - Localised infection [Unknown]
  - Back pain [Unknown]
  - Cough [Unknown]
  - Sneezing [Unknown]
  - Upper-airway cough syndrome [Unknown]
  - Drug intolerance [Unknown]
  - Gastrointestinal pain [Unknown]
  - Blood pressure increased [Unknown]
  - Nausea [Unknown]
  - Drug ineffective [Unknown]
